FAERS Safety Report 13298006 (Version 1)
Quarter: 2017Q1

REPORT INFORMATION
  Report Type: Spontaneous
  Country: US (occurrence: US)
  Receive Date: 20170303
  Receipt Date: 20170303
  Transmission Date: 20170428
  Serious: No
  Sender: FDA-Public Use
  Company Number: None

PATIENT
  Age: 58 Year
  Sex: Male

DRUGS (1)
  1. HUMIRA [Suspect]
     Active Substance: ADALIMUMAB
     Route: 058
     Dates: start: 20160303

REACTIONS (3)
  - Terminal insomnia [None]
  - Musculoskeletal stiffness [None]
  - Bipolar disorder [None]

NARRATIVE: CASE EVENT DATE: 20170302
